FAERS Safety Report 17943102 (Version 1)
Quarter: 2020Q2

REPORT INFORMATION
  Report Type: Spontaneous
  Country: GB (occurrence: GB)
  Receive Date: 20200625
  Receipt Date: 20200625
  Transmission Date: 20200714
  Serious: Yes (Other)
  Sender: FDA-Public Use
  Company Number: NVSC2020GB054013

PATIENT
  Age: 68 Year
  Sex: Female

DRUGS (8)
  1. METHOTREXATE SODIUM. [Suspect]
     Active Substance: METHOTREXATE SODIUM
     Indication: BREAST CANCER FEMALE
     Dosage: ONCE EVERY 3 WEEKS (50 MG M^-2, FOR A TOTAL OF SIX CYCLES)
     Route: 065
  2. CYCLOPHOSPHAMIDE. [Suspect]
     Active Substance: CYCLOPHOSPHAMIDE
     Indication: BREAST CANCER FEMALE
     Dosage: ONCE EVERY 3 WEEKS (600 MG M^-2, FOR A TOTAL OF SIX CYCLES)
     Route: 065
  3. DEXAMETHASONE. [Concomitant]
     Active Substance: DEXAMETHASONE
     Dosage: 8 MG, QD (4 MG, TWICE DAILY (FOR 3 DAYS FOLLOWING CHEMOTHERAPY))
     Route: 048
  4. DEXAMETHASONE. [Concomitant]
     Active Substance: DEXAMETHASONE
     Indication: PRODUCT USED FOR UNKNOWN INDICATION
     Dosage: UNK (DURING CHEMOTHERAPY SHE RECEIVED A TOTAL OF 166 MG)
     Route: 048
  5. FLUOROURACIL. [Suspect]
     Active Substance: FLUOROURACIL
     Indication: BREAST CANCER FEMALE
     Dosage: ONCE EVERY 3 WEEKS (600 MG M^-2, FOR A TOTAL OF SIX CYCLES)
     Route: 065
  6. DEXAMETHASONE. [Concomitant]
     Active Substance: DEXAMETHASONE
     Dosage: 10 MG, UNK (PRIOR TO EACH CYCLE OF CHEMOTHERAPY)
     Route: 048
  7. DOMPERIDONE [Concomitant]
     Active Substance: DOMPERIDONE
     Indication: ANTIEMETIC SUPPORTIVE CARE
     Dosage: 20 MG, 3X/DAY (FOR 3 DAYS FOLLOWING CHEMOTHERAPY)
     Route: 065
  8. GRANISETRON [Concomitant]
     Active Substance: GRANISETRON
     Indication: ANTIEMETIC SUPPORTIVE CARE
     Dosage: 1 MG, (PRIOR TO EACH CYCLE OF CHEMOTHERAPY)
     Route: 048

REACTIONS (2)
  - Off label use [Unknown]
  - Osteonecrosis [Recovered/Resolved]
